FAERS Safety Report 6216613-0 (Version None)
Quarter: 2009Q2

REPORT INFORMATION
  Report Type: 
  Country: None (occurrence: None)
  Receive Date: 20090605
  Receipt Date: 20090527
  Transmission Date: 20091009
  Serious: Yes (Other)
  Sender: FDA-Public Use
  Company Number: PHHY2009CA20101

PATIENT
  Sex: Female

DRUGS (1)
  1. ACLASTA [Suspect]
     Indication: OSTEOPOROSIS
     Dosage: UNK
     Dates: start: 20090506

REACTIONS (4)
  - CHILLS [None]
  - GINGIVAL PAIN [None]
  - LUNG NEOPLASM MALIGNANT [None]
  - PAIN IN JAW [None]
